FAERS Safety Report 25147655 (Version 3)
Quarter: 2025Q4

REPORT INFORMATION
  Report Type: Spontaneous
  Country: EU (occurrence: EU)
  Receive Date: 20250402
  Receipt Date: 20251018
  Transmission Date: 20260118
  Serious: Yes (Hospitalization, Other)
  Sender: AUROBINDO
  Company Number: EU-JNJFOC-20250336282

PATIENT
  Sex: Female
  Weight: 69.9 kg

DRUGS (6)
  1. LENALIDOMIDE [Suspect]
     Active Substance: LENALIDOMIDE
     Indication: Plasma cell myeloma
     Dosage: 10 MILLIGRAM (LAST ADMINISTRATION ON 02-MAR-202430 DAY^S AFTER THERAPY 01-04-2025)
     Route: 048
     Dates: start: 20240924
  2. DARZALEX [Suspect]
     Active Substance: DARATUMUMAB
     Indication: Plasma cell myeloma
     Dosage: 16 MILLIGRAM/KILOGRAM (LAST ADMINISTRATION 10-FEB-202530 DAYS AFTER THERAPY:12-MAR-2025)
     Route: 042
     Dates: start: 20240924
  3. DEXAMETHASONE [Suspect]
     Active Substance: DEXAMETHASONE
     Indication: Plasma cell myeloma
     Dosage: 20 MILLIGRAM (LAST ADMINISTRATION ON 13-SEP-202530 DAY^S AFTER THERAPY 13-OCT-2025)
     Route: 042
     Dates: start: 20240902
  4. DEXAMETHASONE [Suspect]
     Active Substance: DEXAMETHASONE
     Dosage: 20 MILLIGRAM (LAST ADMINISTRATION ON 10-FEB-202530 DAY^S AFTER THERAPY 12-MAR-2025)
     Route: 042
     Dates: start: 20240924
  5. VELCADE [Suspect]
     Active Substance: BORTEZOMIB
     Indication: Plasma cell myeloma
     Dosage: 1.3 MILLIGRAM/SQ. METER (LAST DOSE BEFORE SAE: 12-SEP-202530 DAYS AFTER THERAPY: 12-OCT-2025)
     Route: 058
     Dates: start: 20250902
  6. POMALIDOMIDE [Suspect]
     Active Substance: POMALIDOMIDE
     Indication: Plasma cell myeloma
     Dosage: 4 MILLIGRAM (LAST DOSE BEFORE SAE: 15-SEPT-202530 DAYS AFTER THERAPY: 15-OCT-2025)
     Route: 048
     Dates: start: 20250902

REACTIONS (8)
  - Nausea [Not Recovered/Not Resolved]
  - Decreased appetite [Not Recovered/Not Resolved]
  - General physical health deterioration [Recovered/Resolved]
  - Neutropenia [Unknown]
  - Thrombocytopenia [Unknown]
  - Dyspnoea [Unknown]
  - Diarrhoea [Unknown]
  - Anaemia [Unknown]

NARRATIVE: CASE EVENT DATE: 20250307
